FAERS Safety Report 12919218 (Version 3)
Quarter: 2017Q3

REPORT INFORMATION
  Report Type: Report from Study
  Country: None (occurrence: AR)
  Receive Date: 20161108
  Receipt Date: 20170710
  Transmission Date: 20171127
  Serious: Yes (Hospitalization)
  Sender: FDA-Public Use
  Company Number: AR-ABBVIE-16P-007-1754951-00

PATIENT
  Age: 52 Year
  Sex: Female

DRUGS (3)
  1. INMUNOARTRO [Concomitant]
     Indication: OSTEOARTHRITIS
     Dates: start: 2009
  2. LEFLUNOMIDE. [Concomitant]
     Active Substance: LEFLUNOMIDE
     Indication: RHEUMATOID ARTHRITIS
     Route: 048
     Dates: start: 2009
  3. HUMIRA [Suspect]
     Active Substance: ADALIMUMAB
     Indication: RHEUMATOID ARTHRITIS
     Route: 058
     Dates: start: 20151101, end: 201608

REACTIONS (4)
  - Arthralgia [Recovering/Resolving]
  - Pyrexia [Recovered/Resolved]
  - Rheumatoid arthritis [Recovering/Resolving]
  - Bone decalcification [Unknown]

NARRATIVE: CASE EVENT DATE: 201610
